FAERS Safety Report 5414313-8 (Version None)
Quarter: 2007Q3

REPORT INFORMATION
  Report Type: 
  Country: None (occurrence: None)
  Receive Date: 20070814
  Receipt Date: 20070802
  Transmission Date: 20080115
  Serious: Yes (Other)
  Sender: FDA-Public Use
  Company Number: JP-PFIZER INC-2007065385

PATIENT
  Age: 72 Year
  Sex: Female

DRUGS (4)
  1. CABERGOLINE [Suspect]
     Indication: PARKINSON'S DISEASE
     Route: 048
     Dates: start: 20050401, end: 20061012
  2. DOPASTON [Concomitant]
  3. TOLEDOMIN [Concomitant]
  4. THYRADIN S [Concomitant]

REACTIONS (4)
  - AORTIC VALVE INCOMPETENCE [None]
  - DYSPNOEA [None]
  - OEDEMA PERIPHERAL [None]
  - PALPITATIONS [None]
